FAERS Safety Report 17525938 (Version 1)
Quarter: 2020Q1

REPORT INFORMATION
  Report Type: Report from Study
  Country: JP (occurrence: JP)
  Receive Date: 20200311
  Receipt Date: 20200311
  Transmission Date: 20200409
  Serious: Yes (Other)
  Sender: FDA-Public Use
  Company Number: JP-UCBSA-2020009574

PATIENT
  Age: 77 Year
  Sex: Female
  Weight: 43 kg

DRUGS (6)
  1. VIMPAT [Concomitant]
     Active Substance: LACOSAMIDE
     Indication: PRODUCT USED FOR UNKNOWN INDICATION
     Dosage: 100 MG DAILY
     Route: 048
     Dates: start: 20191210, end: 20191215
  2. LACOSAMIDE. [Suspect]
     Active Substance: LACOSAMIDE
     Indication: OFF LABEL USE
  3. VIMPAT [Concomitant]
     Active Substance: LACOSAMIDE
     Dosage: 200 MG DAILY
     Route: 048
     Dates: start: 20191216
  4. LACOSAMIDE. [Suspect]
     Active Substance: LACOSAMIDE
     Indication: STATUS EPILEPTICUS
     Dosage: 50 MILLIGRAM, 2X/DAY (BID)
     Route: 041
     Dates: start: 20191208, end: 20191211
  5. DIAZEPAM. [Concomitant]
     Active Substance: DIAZEPAM
     Indication: GENERALISED TONIC-CLONIC SEIZURE
     Dosage: UNK
     Route: 042
  6. E KEPPRA [Concomitant]
     Active Substance: LEVETIRACETAM
     Indication: PRODUCT USED FOR UNKNOWN INDICATION
     Dosage: 1000 MG DAILY
     Route: 048
     Dates: start: 20170813, end: 20200116

REACTIONS (2)
  - Off label use [Unknown]
  - Blood creatine phosphokinase increased [Unknown]
